FAERS Safety Report 11238719 (Version 1)
Quarter: 2015Q3

REPORT INFORMATION
  Report Type: Spontaneous
  Country: FR (occurrence: FR)
  Receive Date: 20150706
  Receipt Date: 20150706
  Transmission Date: 20151125
  Serious: Yes (Disabling)
  Sender: FDA-Public Use
  Company Number: PHHY2015FR080128

PATIENT
  Sex: Male

DRUGS (7)
  1. ATACAND [Concomitant]
     Active Substance: CANDESARTAN CILEXETIL
     Indication: CHRONIC MYELOID LEUKAEMIA
     Dosage: LONG TERM
     Route: 065
  2. LARMABAK [Concomitant]
     Indication: CHRONIC MYELOID LEUKAEMIA
     Dosage: LONG TERM
     Route: 065
  3. ARTELAC [Concomitant]
     Active Substance: HYPROMELLOSES
     Indication: CHRONIC MYELOID LEUKAEMIA
     Dosage: LONG TERM
     Route: 065
  4. GLIVEC [Suspect]
     Active Substance: IMATINIB MESYLATE
     Dosage: 200 MG, QD
     Route: 048
     Dates: start: 201506
  5. ESIDREX [Concomitant]
     Active Substance: HYDROCHLOROTHIAZIDE
     Indication: PRODUCT USED FOR UNKNOWN INDICATION
     Dosage: LONG TERM
     Route: 065
  6. LEVOTHYROX [Concomitant]
     Active Substance: LEVOTHYROXINE
     Indication: CHRONIC MYELOID LEUKAEMIA
     Dosage: LONG TERM
     Route: 065
  7. GLIVEC [Suspect]
     Active Substance: IMATINIB MESYLATE
     Indication: CHRONIC MYELOID LEUKAEMIA
     Dosage: 300 MG, QD
     Route: 048
     Dates: start: 201212

REACTIONS (1)
  - Tendon disorder [Not Recovered/Not Resolved]

NARRATIVE: CASE EVENT DATE: 2015
